FAERS Safety Report 7969586-4 (Version None)
Quarter: 2011Q4

REPORT INFORMATION
  Report Type: 
  Country: None (occurrence: None)
  Receive Date: 20111212
  Receipt Date: 20111202
  Transmission Date: 20120403
  Serious: Yes (Hospitalization)
  Sender: FDA-Public Use
  Company Number: US-PFIZER INC-2011296635

PATIENT
  Sex: Female

DRUGS (2)
  1. BRIVANIB ALANINATE [Suspect]
     Indication: COLORECTAL CANCER METASTATIC
     Dosage: 800 MG, DAILY
     Route: 048
  2. IRINOTECAN HCL [Suspect]
     Indication: COLORECTAL CANCER METASTATIC
     Dosage: 236 MG, UNK
     Route: 042

REACTIONS (3)
  - FEMALE GENITAL TRACT FISTULA [None]
  - NEUTROPHIL COUNT DECREASED [None]
  - PROCTALGIA [None]
